FAERS Safety Report 7359430-0 (Version None)
Quarter: 2011Q1

REPORT INFORMATION
  Report Type: 
  Country: None (occurrence: None)
  Receive Date: 20110317
  Receipt Date: 20091228
  Transmission Date: 20110831
  Serious: No
  Sender: FDA-Public Use
  Company Number: US-PFIZER INC-2009315361

PATIENT
  Sex: Male

DRUGS (4)
  1. ATENOLOL [Suspect]
  2. AMLODIPINE BESYLATE [Suspect]
  3. NORVASC [Suspect]
  4. WARFARIN SODIUM [Suspect]

REACTIONS (1)
  - OEDEMA PERIPHERAL [None]
